FAERS Safety Report 22199758 (Version 2)
Quarter: 2024Q2

REPORT INFORMATION
  Report Type: Spontaneous
  Country: KR (occurrence: KR)
  Receive Date: 20230412
  Receipt Date: 20240611
  Transmission Date: 20240716
  Serious: Yes (Disabling)
  Sender: FDA-Public Use
  Company Number: KR-ABBOTT-2023A-1361875

PATIENT
  Age: 63 Year
  Sex: Male

DRUGS (3)
  1. FENOFIBRATE [Suspect]
     Active Substance: FENOFIBRATE
     Indication: Product used for unknown indication
     Route: 048
  2. GLICLAZIDE [Suspect]
     Active Substance: GLICLAZIDE
     Indication: Product used for unknown indication
     Route: 048
  3. EZETIMIBE\SIMVASTATIN [Suspect]
     Active Substance: EZETIMIBE\SIMVASTATIN
     Indication: Product used for unknown indication
     Route: 048

REACTIONS (2)
  - Blindness [Unknown]
  - Endophthalmitis [Unknown]
